FAERS Safety Report 19043480 (Version 2)
Quarter: 2021Q1

REPORT INFORMATION
  Report Type: Report from Study
  Country: None (occurrence: ZA)
  Receive Date: 20210323
  Receipt Date: 20210330
  Transmission Date: 20210420
  Serious: Yes (Hospitalization)
  Sender: FDA-Public Use
  Company Number: ZA-ABBVIE-21K-143-3822377-00

PATIENT
  Sex: Male

DRUGS (1)
  1. HUMIRA [Suspect]
     Active Substance: ADALIMUMAB
     Indication: RHEUMATOID ARTHRITIS
     Route: 058
     Dates: start: 20200327

REACTIONS (3)
  - Cardiac disorder [Not Recovered/Not Resolved]
  - Blood glucose abnormal [Unknown]
  - Illness [Unknown]
